FAERS Safety Report 5084155-4 (Version None)
Quarter: 2006Q3

REPORT INFORMATION
  Report Type: 
  Country: None (occurrence: None)
  Receive Date: 20060821
  Receipt Date: 20060808
  Transmission Date: 20061208
  Serious: Yes (Hospitalization)
  Sender: FDA-Public Use
  Company Number: BE-BAYER-200613544GDS

PATIENT
  Age: 73 Year
  Sex: Male
  Weight: 58 kg

DRUGS (8)
  1. SORAFENIB [Suspect]
     Indication: NEOPLASM MALIGNANT
     Dosage: TOTAL DAILY DOSE: 800 MG
     Route: 048
     Dates: start: 20060715
  2. ELTHYRONE [Concomitant]
     Indication: HYPOTHYROIDISM
     Route: 048
  3. ACETAMINOPHEN [Concomitant]
     Indication: PAIN PROPHYLAXIS
     Route: 048
  4. CODEINE [Concomitant]
     Indication: PAIN PROPHYLAXIS
     Route: 048
  5. CALCIUM GLUCONATE [Concomitant]
     Indication: HYPOCALCAEMIA
     Route: 048
  6. CREON [AMYLASE,LIPASE,PROTEASE] [Concomitant]
     Indication: DYSPEPSIA
     Route: 048
  7. DOCOMEPRA [Concomitant]
     Indication: PROPHYLAXIS AGAINST GASTROINTESTINAL ULCER
     Route: 048
  8. CISPLATIN - 5FU [Concomitant]
     Indication: DRUG USE FOR UNKNOWN INDICATION
     Route: 065
     Dates: end: 20060512

REACTIONS (2)
  - ATRIAL FIBRILLATION [None]
  - CARDIAC FAILURE [None]
